FAERS Safety Report 4836411-X (Version None)
Quarter: 2005Q4

REPORT INFORMATION
  Report Type: 
  Country: None (occurrence: None)
  Receive Date: 20051123
  Receipt Date: 20051110
  Transmission Date: 20060501
  Serious: Yes (Hospitalization)
  Sender: FDA-Public Use
  Company Number: PHBS2005DE16782

PATIENT
  Age: 79 Year
  Sex: Female

DRUGS (4)
  1. DICLOFENAC [Suspect]
     Indication: RHEUMATOID ARTHRITIS
     Dosage: 100 MG/DAY
  2. PANTOPRAZOLE [Suspect]
     Dosage: 40 MG/DAY
  3. PREDNISOLONE [Suspect]
     Indication: RHEUMATOID ARTHRITIS
     Dosage: 5 MG/DAY
  4. LEFLUNOMIDE [Suspect]
     Indication: RHEUMATOID ARTHRITIS
     Dosage: 10 MG/DAY

REACTIONS (20)
  - ABDOMINAL PAIN [None]
  - BILE DUCT STENT INSERTION [None]
  - C-REACTIVE PROTEIN INCREASED [None]
  - CHOLECYSTITIS [None]
  - CHOLELITHIASIS [None]
  - COLONOSCOPY [None]
  - DUODENAL PERFORATION [None]
  - DUODENAL ULCER [None]
  - ENDOSCOPIC RETROGRADE CHOLANGIOPANCREATOGRAPHY [None]
  - ESCHERICHIA URINARY TRACT INFECTION [None]
  - GALLBLADDER DISORDER [None]
  - GALLBLADDER FISTULA [None]
  - GASTROINTESTINAL ISCHAEMIA [None]
  - GASTROINTESTINAL NECROSIS [None]
  - GENERAL PHYSICAL HEALTH DETERIORATION [None]
  - MECHANICAL ILEUS [None]
  - REFLUX OESOPHAGITIS [None]
  - SEPSIS [None]
  - URINARY TRACT INFECTION [None]
  - VOMITING [None]
